FAERS Safety Report 8582980-6 (Version None)
Quarter: 2012Q2

REPORT INFORMATION
  Report Type: 
  Country: None (occurrence: None)
  Receive Date: 20120423
  Receipt Date: 20100419
  Transmission Date: 20120825
  Serious: Yes (Hospitalization)
  Sender: FDA-Public Use
  Company Number: PHHY2010US26036

PATIENT
  Sex: Male

DRUGS (18)
  1. FORADIL [Suspect]
     Indication: RHEUMATOID LUNG
     Dosage: ONE 12 MCG CAPSULE TWICE A DAY
  2. PYRIDOXIN (PYRIDOXINE HYDROCHLORIDE) [Concomitant]
  3. ASPIRIN [Concomitant]
  4. NITROGLYCERIN [Concomitant]
  5. POTASSIUM CHLORIDE [Concomitant]
  6. VITAMIN B12 [Concomitant]
  7. FOLIC ACID [Concomitant]
  8. PRILOSEC [Concomitant]
  9. DUONEB [Concomitant]
  10. COMBIVENT [Concomitant]
  11. ACETAMINOPHEN [Concomitant]
  12. VICODIN [Concomitant]
  13. DIGOXIN [Concomitant]
  14. VITAMIN E [Concomitant]
  15. VITAMIN D [Concomitant]
  16. PREDNISONE TAB [Concomitant]
  17. ASMANEX TWISTHALER [Concomitant]
  18. AMOXICILLIN [Concomitant]

REACTIONS (1)
  - PNEUMONIA [None]
